FAERS Safety Report 22169891 (Version 1)
Quarter: 2023Q2

REPORT INFORMATION
  Report Type: Spontaneous
  Country: CZ (occurrence: CZ)
  Receive Date: 20230404
  Receipt Date: 20230404
  Transmission Date: 20230722
  Serious: Yes (Other)
  Sender: FDA-Public Use
  Company Number: CZ-002147023-NVSC2023CZ075769

PATIENT
  Age: 16 Year
  Sex: Female

DRUGS (3)
  1. METHOTREXATE [Suspect]
     Active Substance: METHOTREXATE
     Indication: Product used for unknown indication
     Dosage: UNK
     Route: 065
  2. INFLIXIMAB [Suspect]
     Active Substance: INFLIXIMAB
     Indication: Product used for unknown indication
     Dosage: UNK (0-2-6)
     Route: 065
  3. INFLIXIMAB [Suspect]
     Active Substance: INFLIXIMAB
     Dosage: UNK (0-1-3)
     Route: 065

REACTIONS (15)
  - Proctitis ulcerative [Unknown]
  - Deafness [Unknown]
  - Crohn^s disease [Unknown]
  - Constipation [Unknown]
  - Intestinal haemorrhage [Unknown]
  - Abdominal pain [Unknown]
  - Faecal calprotectin increased [Unknown]
  - Enteropathic spondylitis [Unknown]
  - Back pain [Unknown]
  - Raynaud^s phenomenon [Unknown]
  - Paraesthesia [Unknown]
  - Adenoidal hypertrophy [Unknown]
  - Headache [Unknown]
  - Asthma [Unknown]
  - Maternal exposure during pregnancy [Unknown]

NARRATIVE: CASE EVENT DATE: 20220901
